FAERS Safety Report 9305704 (Version 2)
Quarter: 2013Q1

REPORT INFORMATION
  Report Type: Spontaneous
  Country: US (occurrence: None)
  Receive Date: 20130111
  Receipt Date: 20130222
  Transmission Date: 20140127
  Serious: Yes (Other)
  Sender: FDA-Public Use
  Company Number: ADR-2010-8609

PATIENT
  Sex: Male

DRUGS (1)
  1. LIORESAL [Suspect]
     Indication: MUSCLE SPASTICITY
     Route: 037

REACTIONS (15)
  - Underdose [None]
  - Nausea [None]
  - Pyrexia [None]
  - Pruritus [None]
  - Tremor [None]
  - Vomiting [None]
  - Abdominal distension [None]
  - Medical device complication [None]
  - Drug withdrawal syndrome [None]
  - Malaise [None]
  - Drug effect decreased [None]
  - Musculoskeletal disorder [None]
  - Hypophagia [None]
  - Early satiety [None]
  - Product substitution issue [None]
